FAERS Safety Report 5311317-0 (Version None)
Quarter: 2007Q2

REPORT INFORMATION
  Report Type: 
  Country: None (occurrence: None)
  Receive Date: 20070423
  Receipt Date: 20070416
  Transmission Date: 20071010
  Serious: Yes (Death)
  Sender: FDA-Public Use
  Company Number: 2007-157264-NL

PATIENT
  Age: 20 Year
  Sex: Male

DRUGS (6)
  1. MIRTAZAPINE [Suspect]
     Indication: DEPRESSION
     Dosage: 30 MG QD ORAL
     Route: 048
     Dates: start: 20070130
  2. METHADONE HCL [Suspect]
     Indication: ABNORMAL BEHAVIOUR
     Dosage: 20 MG QD ORAL
     Route: 048
     Dates: start: 20070302
  3. METHADONE HCL [Suspect]
     Indication: DEPENDENCE
     Dosage: 20 MG QD ORAL
     Route: 048
     Dates: start: 20070302
  4. METHADONE HCL [Suspect]
     Indication: MENTAL DISORDER
     Dosage: 20 MG QD ORAL
     Route: 048
     Dates: start: 20070302
  5. OLANZAPINE [Suspect]
     Indication: PERSONALITY DISORDER
     Dosage: 5 MG QID ORAL
     Route: 048
     Dates: start: 20070130
  6. LORAZEPAM [Concomitant]

REACTIONS (2)
  - CARDIAC ARREST [None]
  - SUDDEN DEATH [None]
